FAERS Safety Report 10010588 (Version 2)
Quarter: 2014Q1

REPORT INFORMATION
  Report Type: Spontaneous
  Country: JP (occurrence: JP)
  Receive Date: 20140314
  Receipt Date: 20140324
  Transmission Date: 20141002
  Serious: Yes (Other)
  Sender: FDA-Public Use
  Company Number: JP-ROCHE-1364137

PATIENT
  Age: 34 Year
  Sex: Female

DRUGS (8)
  1. CELLCEPT [Suspect]
     Indication: PROPHYLAXIS AGAINST GRAFT VERSUS HOST DISEASE
     Dosage: DOSAGE IS UNCERTAIN.
     Route: 048
     Dates: start: 201306
  2. FLUDARABINE PHOSPHATE [Concomitant]
     Route: 065
     Dates: start: 201306, end: 201306
  3. FLUDARABINE PHOSPHATE [Concomitant]
     Route: 065
     Dates: start: 201308, end: 201308
  4. CYCLOPHOSPHAMIDE [Concomitant]
     Route: 065
     Dates: start: 201306, end: 201306
  5. CICLOSPORIN [Concomitant]
     Indication: PROPHYLAXIS AGAINST GRAFT VERSUS HOST DISEASE
     Dosage: DOSAGE IS UNCERTAIN.
     Route: 065
     Dates: start: 201306
  6. TACROLIMUS HYDRATE [Concomitant]
     Indication: PROPHYLAXIS AGAINST GRAFT VERSUS HOST DISEASE
     Dosage: DOSAGE IS UNCERTAIN.
     Route: 065
     Dates: start: 201308
  7. BUSULFAN [Concomitant]
     Route: 065
     Dates: start: 201308, end: 201308
  8. METHYLPREDNISOLONE SODIUM SUCCINATE [Concomitant]
     Indication: ACUTE GRAFT VERSUS HOST DISEASE IN INTESTINE
     Dosage: DOSAGE IS UNCERTAIN.
     Route: 041
     Dates: start: 2013, end: 2013

REACTIONS (2)
  - Thrombotic microangiopathy [Unknown]
  - Off label use [Unknown]
